FAERS Safety Report 20630972 (Version 2)
Quarter: 2022Q2

REPORT INFORMATION
  Report Type: Spontaneous
  Country: US (occurrence: US)
  Receive Date: 20220324
  Receipt Date: 20220428
  Transmission Date: 20220721
  Serious: Yes (Other)
  Sender: FDA-Public Use
  Company Number: US-HORIZON THERAPEUTICS-HZN-2022-002109

PATIENT

DRUGS (43)
  1. KRYSTEXXA [Suspect]
     Active Substance: PEGLOTICASE
     Indication: Gouty tophus
     Dosage: UNK
     Route: 042
  2. KRYSTEXXA [Suspect]
     Active Substance: PEGLOTICASE
     Dosage: 8 MG
     Route: 042
     Dates: start: 20210720
  3. KRYSTEXXA [Suspect]
     Active Substance: PEGLOTICASE
     Dosage: 8 MG
     Route: 042
     Dates: start: 20210824
  4. LIORESAL [Concomitant]
     Active Substance: BACLOFEN
     Dosage: TAKE 0.5 TABLETS BY MOUTH 3 TIMES DAILY
  5. INSULIN GLARGINE [Concomitant]
     Active Substance: INSULIN GLARGINE
     Dosage: 2 UNIT DAILY
  6. PANTOPRAZOLE [Concomitant]
     Active Substance: PANTOPRAZOLE
     Dosage: 40 MG, QD
     Route: 048
  7. INSULIN ASPART [Concomitant]
     Active Substance: INSULIN ASPART
     Dosage: INJECT 26 UNITS PRIOR TO BREAKFAST, 26 UNITS PRIOR TO LUNCH, 32 UNITS PRIOR TO DINNER PLUS SLIDING S
  8. ROPINIROLE [Concomitant]
     Active Substance: ROPINIROLE
     Dosage: TAKE 1 TABLET BY MOUTH DAILY
     Route: 048
  9. ATORVASTATIN [Concomitant]
     Active Substance: ATORVASTATIN
     Dosage: TAKE 1 TABLET BY MOUTH DAILY
     Route: 048
  10. PLECANATIDE [Concomitant]
     Active Substance: PLECANATIDE
     Dosage: TAKE 1 TABLET BY MOUTH DAILY
  11. XARELTO [Concomitant]
     Active Substance: RIVAROXABAN
     Dosage: TAKE 1 TABLET BY MOUTH EVERY DAY WITH DINNER
  12. TAMSULOSIN [Concomitant]
     Active Substance: TAMSULOSIN
     Dosage: 0.4 MG, BID
     Route: 048
  13. BUPROPION [Concomitant]
     Active Substance: BUPROPION
     Dosage: 300 MG 24 HR TABLET  (TAKE 1 TABLET BY MOUTH DAILY)
     Route: 048
  14. MIRTAZAPINE [Concomitant]
     Active Substance: MIRTAZAPINE
     Dosage: 45 MG, TAKE 1 TABLET BY MOUTH NIGHTLY
     Route: 048
  15. ZALEPLON [Concomitant]
     Active Substance: ZALEPLON
     Dosage: 5 MG, TAKE 1 CAPSULE BY MOUTH NIGHTLY
     Route: 048
  16. FEBUXOSTAT [Concomitant]
     Active Substance: FEBUXOSTAT
     Dosage: 80 MG, TAKE 80 MG BY MOUTH DAILY
     Route: 048
  17. SOTALOL [Concomitant]
     Active Substance: SOTALOL
     Dosage: 80 MG, QD, TAKE 80 MG BY MOUTH DAILY
     Route: 048
  18. CLOPIDOGREL [Concomitant]
     Active Substance: CLOPIDOGREL BISULFATE
     Dosage: 75 MG, QD,TAKE 1 TABLET BY MOUTH DAILY
     Route: 048
  19. LORATADINE [Concomitant]
     Active Substance: LORATADINE
     Dosage: 10 MG, QD, TAKE 10 MG BY MOUTH DAILY
     Route: 048
  20. ERGOCALCIFEROL [Concomitant]
     Active Substance: ERGOCALCIFEROL
     Dosage: 1.25 MG, TAKE 1 CAPSULE BY MOUTH 2 DAYS A WEEK
  21. VITAMIN E [Concomitant]
     Active Substance: .ALPHA.-TOCOPHEROL
     Dosage: TAKE 800 UNITS BY MOUTH DAILY
  22. COLCHICINE [Concomitant]
     Active Substance: COLCHICINE
     Dosage: 0.6 MG, QD, TAKE 1 CAPSULE BY MOUTH DAILY
  23. DOCUSATE SODIUM [Concomitant]
     Active Substance: DOCUSATE SODIUM
     Indication: Constipation
     Dosage: TAKE 100 MG BY MOUTH 2 TIMES DAILY
     Route: 048
  24. BISACODYL [Concomitant]
     Active Substance: BISACODYL
     Indication: Constipation
     Dosage: TAKE 10 MG RECTALLY DAILY AS NEEDED FOR CONSTIPATION
     Route: 054
  25. NITROGLYCERIN [Concomitant]
     Active Substance: NITROGLYCERIN
     Indication: Chest pain
     Dosage: SUBLINGUAL TABLET (PLACE 1 TABLET UNDER THE TONGUE EVERY 5 MINUTES AS NEEDED
     Route: 060
  26. VITAMIN B12 [Concomitant]
     Active Substance: CYANOCOBALAMIN
     Dosage: TAKE 1 TABLET BY MOUTH EVERY DAY
     Route: 048
  27. DIPHENHYDRAMINE [Concomitant]
     Active Substance: DIPHENHYDRAMINE
     Indication: Pruritus
     Dosage: TAKE 1 TABLET BY MOUTH 3 TIMES DAILY
     Route: 048
  28. FLUTICASONE [Concomitant]
     Active Substance: FLUTICASONE
     Dosage: SPRAY 2 SPRAY EACH NOSTRIL DAILY
  29. OXYBUTYNIN [Concomitant]
     Active Substance: OXYBUTYNIN
     Dosage: TAKE 1 TABLET BY MOUTH 3 TIMES DAILY AS NEEDED
  30. ZINC CHELATED [Concomitant]
     Dosage: 50 MG, BID
     Route: 048
  31. DIMETHICONE\LOPERAMIDE HYDROCHLORIDE [Concomitant]
     Active Substance: DIMETHICONE\LOPERAMIDE HYDROCHLORIDE
     Indication: Diarrhoea
     Dosage: TAKE 2 TABLETS BY MOUTH AS NEEDED
     Route: 048
  32. GLUCAGON [Concomitant]
     Active Substance: GLUCAGON
  33. HERBALS\TURMERIC [Concomitant]
     Active Substance: HERBALS\TURMERIC
     Dosage: 1500 MG
     Route: 048
  34. ONDANSETRON [Concomitant]
     Active Substance: ONDANSETRON
     Indication: Nausea
     Dosage: PLACE 1 TABLET ONTO THE TONGUE EVERY 8 HRS
  35. DIETARY SUPPLEMENT\UBIDECARENONE [Concomitant]
     Active Substance: DIETARY SUPPLEMENT\UBIDECARENONE
     Dosage: 100 MG, QD, TAKE 100MG BY MOUTH DAILY
     Route: 048
  36. ACETAMINOPHEN [Concomitant]
     Active Substance: ACETAMINOPHEN
     Indication: Pain
     Dosage: TAKE 650 MG BY MOUTH EVERY 4 HRS  AS NEEDED
     Route: 048
  37. ACETAMINOPHEN [Concomitant]
     Active Substance: ACETAMINOPHEN
     Indication: Pyrexia
  38. CINNAMON\HERBALS [Concomitant]
     Active Substance: CINNAMON\HERBALS
     Dosage: TAKE 1000 MG BY MOUTH DAILY
     Route: 048
  39. MAGNESIUM [Concomitant]
     Active Substance: MAGNESIUM
     Dosage: 5 TABLETS BY MOUTH DAILY
     Route: 048
  40. INSULIN NOS [Concomitant]
     Active Substance: INSULIN NOS
     Dosage: UNK
     Dates: start: 20130729
  41. OMEGA 3 FATTY ACIDS (FISH OIL) [Concomitant]
     Indication: Product used for unknown indication
     Dosage: 1000 MG, QD
  42. METHYLCELLULOSES [Concomitant]
     Active Substance: METHYLCELLULOSES
     Indication: Product used for unknown indication
     Dosage: 500 MG, QD
  43. DULOXETINE [Concomitant]
     Active Substance: DULOXETINE
     Indication: Product used for unknown indication
     Dosage: 30 MG, BID
     Route: 048

REACTIONS (3)
  - Blood pressure increased [Unknown]
  - Urinary tract infection [Not Recovered/Not Resolved]
  - Decubitus ulcer [Not Recovered/Not Resolved]

NARRATIVE: CASE EVENT DATE: 20211012
